FAERS Safety Report 4946174-5 (Version None)
Quarter: 2006Q1

REPORT INFORMATION
  Report Type: 
  Country: None (occurrence: None)
  Receive Date: 20060118
  Receipt Date: 20050323
  Transmission Date: 20060701
  Serious: Yes (Death)
  Sender: FDA-Public Use
  Company Number: US-JNJFOC-20050302609

PATIENT
  Age: 77 Year
  Sex: Female

DRUGS (2)
  1. DOXIL [Suspect]
     Indication: OVARIAN CANCER METASTATIC
     Dosage: 55 MG, 1 IN 3 WEEK, INTRAVENOUS
     Route: 042
     Dates: end: 20030501
  2. DOXIL [Suspect]
     Indication: OVARIAN CANCER METASTATIC
     Dosage: 55 MG, 1 IN 3 WEEK, INTRAVENOUS
     Route: 042
     Dates: start: 20010301

REACTIONS (2)
  - MALIGNANT NEOPLASM PROGRESSION [None]
  - OVARIAN CANCER [None]
